FAERS Safety Report 4305858-2 (Version None)
Quarter: 2004Q1

REPORT INFORMATION
  Report Type: 
  Country: None (occurrence: None)
  Receive Date: 20040225
  Receipt Date: 20040209
  Transmission Date: 20041129
  Serious: Yes (Hospitalization)
  Sender: FDA-Public Use
  Company Number: A02200400002

PATIENT
  Age: 73 Year
  Sex: Male

DRUGS (1)
  1. PLAVIX [Suspect]
     Dosage: 75 MG OD
     Route: 048
     Dates: start: 20030201, end: 20031201

REACTIONS (1)
  - MYELODYSPLASTIC SYNDROME [None]
